FAERS Safety Report 12006078 (Version 1)
Quarter: 2016Q1

REPORT INFORMATION
  Report Type: Spontaneous
  Country: US (occurrence: US)
  Receive Date: 20160204
  Receipt Date: 20160204
  Transmission Date: 20160526
  Serious: Yes (Other)
  Sender: FDA-Public Use
  Company Number: US-TARO-2016TAR00095

PATIENT
  Age: 31 Year
  Sex: Male

DRUGS (9)
  1. LYRICA [Concomitant]
     Active Substance: PREGABALIN
  2. AMBIEN ER [Concomitant]
  3. KEVEYIS [Suspect]
     Active Substance: DICHLORPHENAMIDE
     Indication: FAMILIAL PERIODIC PARALYSIS
     Dosage: UNK, 2X/DAY
     Dates: start: 20160106
  4. RITALIN [Concomitant]
     Active Substance: METHYLPHENIDATE HYDROCHLORIDE
  5. BACLOFEN. [Concomitant]
     Active Substance: BACLOFEN
  6. LISINOPRIL. [Concomitant]
     Active Substance: LISINOPRIL
  7. ABILIFY [Concomitant]
     Active Substance: ARIPIPRAZOLE
  8. NEXIUM [Concomitant]
     Active Substance: ESOMEPRAZOLE MAGNESIUM
  9. WELLBUTRIN [Concomitant]
     Active Substance: BUPROPION HYDROCHLORIDE

REACTIONS (4)
  - Renal impairment [Unknown]
  - Liver function test abnormal [Unknown]
  - Mental impairment [Unknown]
  - Anuria [Unknown]

NARRATIVE: CASE EVENT DATE: 201601
